FAERS Safety Report 11009488 (Version 1)
Quarter: 2015Q2

REPORT INFORMATION
  Report Type: Spontaneous
  Country: US (occurrence: None)
  Receive Date: 20150409
  Receipt Date: 20150409
  Transmission Date: 20150821
  Serious: Yes (Other)
  Sender: FDA-Public Use
  Company Number: None

PATIENT
  Age: 65 Year
  Sex: Female

DRUGS (7)
  1. AFINITOR [Suspect]
     Active Substance: EVEROLIMUS
     Indication: BREAST CANCER
     Route: 048
     Dates: start: 20131105
  2. PROCHLORPERAZINE. [Concomitant]
     Active Substance: PROCHLORPERAZINE
  3. CALCIUM [Concomitant]
     Active Substance: CALCIUM
  4. EXEMESTANE 25 MG [Suspect]
     Active Substance: EXEMESTANE
     Route: 048
  5. METOPROLOL [Concomitant]
     Active Substance: METOPROLOL
  6. VITAMIN C [Concomitant]
     Active Substance: ASCORBIC ACID
  7. LISINOPRIL. [Concomitant]
     Active Substance: LISINOPRIL

REACTIONS (2)
  - Nail disorder [None]
  - Stomatitis [None]
